FAERS Safety Report 4837258-0 (Version None)
Quarter: 2005Q4

REPORT INFORMATION
  Report Type: 
  Country: None (occurrence: None)
  Receive Date: 20051122
  Receipt Date: 20051108
  Transmission Date: 20060501
  Serious: Yes (Death)
  Sender: FDA-Public Use
  Company Number: COT_0251_2005

PATIENT
  Age: 59 Year
  Sex: Female
  Weight: 93.441 kg

DRUGS (4)
  1. VENTAVIS [Suspect]
     Indication: PULMONARY HYPERTENSION
     Dosage: 5 MCG 6XD IH
     Route: 025
     Dates: start: 20051103
  2. SILDENAFIL [Concomitant]
  3. SPIRONOLACTONE [Concomitant]
  4. LASIX [Concomitant]

REACTIONS (9)
  - ATELECTASIS [None]
  - CARDIAC ARREST [None]
  - CHEST PAIN [None]
  - FATIGUE [None]
  - HEADACHE [None]
  - NAUSEA [None]
  - PALPITATIONS [None]
  - PULMONARY EMBOLISM [None]
  - THROAT IRRITATION [None]
